FAERS Safety Report 9928156 (Version 3)
Quarter: 2015Q1

REPORT INFORMATION
  Report Type: Spontaneous
  Country: US (occurrence: US)
  Receive Date: 20140227
  Receipt Date: 20140227
  Transmission Date: 20150721
  Serious: Yes (Other)
  Sender: FDA-Public Use
  Company Number: US-GE HEALTHCARE MEDICAL DIAGNOSTICS-OSCN-PR-0902S-0084

PATIENT
  Age: 49 Year
  Sex: Male

DRUGS (8)
  1. OMNISCAN [Suspect]
     Active Substance: GADODIAMIDE
     Indication: LIVER TRANSPLANT
     Route: 042
     Dates: start: 20050105, end: 20050105
  2. MAGNEVIST [Suspect]
     Active Substance: GADOPENTETATE DIMEGLUMINE
     Indication: INTERVERTEBRAL DISC OPERATION
     Route: 042
     Dates: start: 20031230, end: 20031230
  3. GADOLINIUM (UNSPECIFIED) [Suspect]
     Active Substance: GADOLINIUM
     Indication: SOFT TISSUE INFECTION
  4. MAGNEVIST [Suspect]
     Active Substance: GADOPENTETATE DIMEGLUMINE
     Indication: MUSCULAR WEAKNESS
  5. OMNISCAN [Suspect]
     Active Substance: GADODIAMIDE
     Indication: LIVER FUNCTION TEST ABNORMAL
     Route: 042
     Dates: start: 20050211, end: 20050211
  6. GADOLINIUM (UNSPECIFIED) [Suspect]
     Active Substance: GADOLINIUM
     Indication: PRODUCT USED FOR UNKNOWN INDICATION
     Route: 042
     Dates: start: 20070615, end: 20070615
  7. MAGNEVIST [Suspect]
     Active Substance: GADOPENTETATE DIMEGLUMINE
     Indication: MENTAL STATUS CHANGES POSTOPERATIVE
     Route: 042
     Dates: start: 20050224, end: 20050224
  8. MAGNEVIST [Suspect]
     Active Substance: GADOPENTETATE DIMEGLUMINE
     Indication: SOFT TISSUE INFECTION

REACTIONS (1)
  - Nephrogenic systemic fibrosis [Not Recovered/Not Resolved]

NARRATIVE: CASE EVENT DATE: 20050330
